FAERS Safety Report 9739248 (Version 2)
Quarter: 2013Q4

REPORT INFORMATION
  Report Type: Spontaneous
  Country: BR (occurrence: BR)
  Receive Date: 20131209
  Receipt Date: 20131224
  Transmission Date: 20140711
  Serious: Yes (Other)
  Sender: FDA-Public Use
  Company Number: BR-NOVOPROD-394079

PATIENT
  Age: 78 Year
  Sex: Male
  Weight: 85 kg

DRUGS (7)
  1. VICTOZA [Suspect]
     Indication: TYPE 2 DIABETES MELLITUS
     Dosage: 0.6 MG, QD
     Route: 058
     Dates: start: 2012
  2. SOTALOL [Concomitant]
     Indication: ATRIAL FIBRILLATION
     Dosage: 1 TAB, QD
     Route: 048
  3. FLUOXETINE [Concomitant]
     Indication: ANXIETY
     Dosage: 1 TAB, QD
     Route: 048
  4. METFORMIN [Concomitant]
     Indication: TYPE 2 DIABETES MELLITUS
     Dosage: 2 TAB, QD
     Route: 048
  5. ROSUVASTATINA                      /01588601/ [Concomitant]
     Indication: BLOOD CHOLESTEROL ABNORMAL
     Dosage: 1 TAB, QD
     Route: 048
  6. COUMADIN                           /00014802/ [Concomitant]
     Indication: ATRIAL FIBRILLATION
     Dosage: 1 TAB, QD
     Route: 048
  7. PURAN T4 [Concomitant]
     Indication: HYPOTHYROIDISM
     Dosage: 1 TAB, QD
     Route: 048

REACTIONS (5)
  - Cerebrovascular accident [Unknown]
  - Cerebral ischaemia [Unknown]
  - Cerebral ischaemia [Unknown]
  - Cerebral amyloid angiopathy [Unknown]
  - Weight decreased [Unknown]
